FAERS Safety Report 5026146-5 (Version None)
Quarter: 2006Q2

REPORT INFORMATION
  Report Type: 
  Country: None (occurrence: None)
  Receive Date: 20060608
  Receipt Date: 20020103
  Transmission Date: 20061013
  Serious: No
  Sender: FDA-Public Use
  Company Number: 2002-01-0462

PATIENT
  Sex: Male

DRUGS (3)
  1. ETHYOL [Suspect]
     Indication: ADVERSE DRUG REACTION
     Dosage: SUBCUTANEOUS
     Route: 058
     Dates: start: 20001012, end: 20001127
  2. RADIATION THERAPY [Concomitant]
  3. DEXAMETHASONE TAB [Concomitant]

REACTIONS (2)
  - ERYTHEMA MULTIFORME [None]
  - RADIATION ASSOCIATED PAIN [None]
